FAERS Safety Report 6387161-2 (Version None)
Quarter: 2009Q4

REPORT INFORMATION
  Report Type: 
  Country: None (occurrence: None)
  Receive Date: 20091002
  Receipt Date: 20090928
  Transmission Date: 20100525
  Serious: Yes (Hospitalization)
  Sender: FDA-Public Use
  Company Number: PHHY2009JP40604

PATIENT
  Age: 55 Year
  Sex: Female

DRUGS (1)
  1. DICLOFENAC SODIUM [Suspect]
     Indication: ABDOMINAL PAIN LOWER
     Dosage: 50 MG, UNK
     Route: 054

REACTIONS (11)
  - ABDOMINAL PAIN LOWER [None]
  - ADHESION [None]
  - DECREASED APPETITE [None]
  - HAEMODIALYSIS [None]
  - HYSTERECTOMY [None]
  - LYMPHADENECTOMY [None]
  - MASS [None]
  - OMENTECTOMY [None]
  - OVARIAN CANCER [None]
  - RENAL FAILURE ACUTE [None]
  - SALPINGO-OOPHORECTOMY [None]
